FAERS Safety Report 23041058 (Version 1)
Quarter: 2023Q4

REPORT INFORMATION
  Report Type: Spontaneous
  Country: FR (occurrence: FR)
  Receive Date: 20231007
  Receipt Date: 20231007
  Transmission Date: 20240109
  Serious: Yes (Other)
  Sender: FDA-Public Use
  Company Number: FR-SERVIER-S23010829

PATIENT
  Age: 78 Year
  Sex: Female

DRUGS (6)
  1. ACETAMINOPHEN [Suspect]
     Active Substance: ACETAMINOPHEN
     Indication: Spinal pain
     Dosage: UNK
     Route: 048
     Dates: end: 20230612
  2. ACETAMINOPHEN [Suspect]
     Active Substance: ACETAMINOPHEN
     Dosage: UNK
     Route: 048
     Dates: start: 20230715, end: 20230821
  3. KETOPROFEN [Suspect]
     Active Substance: KETOPROFEN
     Indication: Spinal pain
     Dosage: UNK
     Route: 048
     Dates: end: 20230612
  4. TIANEPTINE [Suspect]
     Active Substance: TIANEPTINE
     Indication: Adjustment disorder with depressed mood
     Dosage: 2 DOSAGE FORM, ONCE A DAY
     Route: 048
     Dates: end: 20230612
  5. TIANEPTINE [Suspect]
     Active Substance: TIANEPTINE
     Dosage: 3 DOSAGE FORM, ONCE A DAY
     Route: 048
     Dates: start: 20230715, end: 20230821
  6. DICLOFENAC DIETHYLAMINE [Suspect]
     Active Substance: DICLOFENAC DIETHYLAMINE
     Indication: Spinal pain
     Dosage: UNK
     Route: 048
     Dates: end: 20230612

REACTIONS (2)
  - Transaminases increased [Recovered/Resolved]
  - Prescribed underdose [Recovered/Resolved]

NARRATIVE: CASE EVENT DATE: 20230612
